FAERS Safety Report 8303337-9 (Version None)
Quarter: 2012Q2

REPORT INFORMATION
  Report Type: 
  Country: None (occurrence: None)
  Receive Date: 20120423
  Receipt Date: 20120418
  Transmission Date: 20120825
  Serious: No
  Sender: FDA-Public Use
  Company Number: US-BIOGENIDEC-2012BI013543

PATIENT
  Sex: Female

DRUGS (1)
  1. TYSABRI [Suspect]
     Indication: MULTIPLE SCLEROSIS
     Route: 042
     Dates: start: 20070901

REACTIONS (7)
  - MEMORY IMPAIRMENT [None]
  - DYSPNOEA [None]
  - DEPRESSED MOOD [None]
  - STRESS [None]
  - LOSS OF CONTROL OF LEGS [None]
  - BLADDER DISORDER [None]
  - COORDINATION ABNORMAL [None]
